FAERS Safety Report 19116150 (Version 1)
Quarter: 2021Q2

REPORT INFORMATION
  Report Type: Spontaneous
  Country: IN (occurrence: IN)
  Receive Date: 20210409
  Receipt Date: 20210409
  Transmission Date: 20210717
  Serious: Yes (Death, Life-Threatening, Other)
  Sender: FDA-Public Use
  Company Number: IN-VALIDUS PHARMACEUTICALS LLC-IN-2021VAL000407

PATIENT
  Sex: Male
  Weight: .5 kg

DRUGS (2)
  1. CEFOTAXIME SODIUM [Suspect]
     Active Substance: CEFOTAXIME SODIUM
     Indication: SEPSIS NEONATAL
     Dosage: UNK
     Route: 065
  2. GENTAMICIN SULFATE. [Suspect]
     Active Substance: GENTAMICIN SULFATE
     Indication: SEPSIS NEONATAL
     Dosage: UNK
     Route: 065

REACTIONS (6)
  - Mucormycosis [Fatal]
  - Pyrexia [Unknown]
  - Pustule [Unknown]
  - Ulcer [Unknown]
  - Scab [Unknown]
  - Dermatitis bullous [Unknown]
